FAERS Safety Report 6903249-9 (Version None)
Quarter: 2010Q3

REPORT INFORMATION
  Report Type: 
  Country: None (occurrence: None)
  Receive Date: 20100803
  Receipt Date: 20080818
  Transmission Date: 20110219
  Serious: Yes (Other)
  Sender: FDA-Public Use
  Company Number: US-PFIZER INC-2008048252

PATIENT
  Sex: Female

DRUGS (6)
  1. LYRICA [Suspect]
     Indication: FIBROMYALGIA
     Dates: start: 20070801
  2. CYMBALTA [Suspect]
  3. PRILOSEC [Concomitant]
  4. AMBIEN [Concomitant]
  5. FLEXERIL [Concomitant]
  6. DARVOCET [Concomitant]

REACTIONS (7)
  - BRONCHITIS [None]
  - CARDIAC FAILURE CONGESTIVE [None]
  - COUGH [None]
  - DYSPNOEA [None]
  - NASOPHARYNGITIS [None]
  - OEDEMA PERIPHERAL [None]
  - WEIGHT INCREASED [None]
